FAERS Safety Report 7952049-X (Version None)
Quarter: 2011Q4

REPORT INFORMATION
  Report Type: 
  Country: None (occurrence: None)
  Receive Date: 20111130
  Receipt Date: 20111130
  Transmission Date: 20120403
  Serious: Yes (Hospitalization)
  Sender: FDA-Public Use
  Company Number: None

PATIENT
  Age: 55 Year
  Sex: Male
  Weight: 65.9 kg

DRUGS (1)
  1. ROSUVASTATIN [Suspect]
     Indication: HYPERLIPIDAEMIA
     Dosage: 20 MG HS PO
     Route: 048
     Dates: start: 20110629, end: 20110817

REACTIONS (3)
  - DYSPNOEA [None]
  - RENAL FAILURE [None]
  - RHABDOMYOLYSIS [None]
